FAERS Safety Report 23445177 (Version 8)
Quarter: 2025Q1

REPORT INFORMATION
  Report Type: Spontaneous
  Country: CA (occurrence: CA)
  Receive Date: 20240125
  Receipt Date: 20250131
  Transmission Date: 20250409
  Serious: Yes (Death, Hospitalization, Other)
  Sender: GENMAB
  Company Number: None

PATIENT
  Age: 39 Year
  Sex: Male

DRUGS (3)
  1. EPKINLY [Suspect]
     Active Substance: EPCORITAMAB-BYSP
     Indication: Diffuse large B-cell lymphoma
     Dosage: 48 MILLIGRAM, WEEKLY (FORM STRENGTH: 48 MILLIGRAM)
     Route: 058
     Dates: start: 20231228, end: 20240125
  2. EPKINLY [Suspect]
     Active Substance: EPCORITAMAB-BYSP
     Route: 058
     Dates: start: 20240202
  3. EPKINLY [Suspect]
     Active Substance: EPCORITAMAB-BYSP
     Dosage: 48 MILLIGRAM,WEEKLY
     Route: 058

REACTIONS (29)
  - Cytokine release syndrome [Fatal]
  - Enterovirus infection [Fatal]
  - Pancytopenia [Fatal]
  - Hepatosplenomegaly [Fatal]
  - Epistaxis [Fatal]
  - Cough [Fatal]
  - Jaundice [Fatal]
  - Contusion [Fatal]
  - Hyperhidrosis [Fatal]
  - Rhinovirus infection [Fatal]
  - Fatigue [Fatal]
  - Pyrexia [Fatal]
  - Dehydration [Fatal]
  - Arthralgia [Fatal]
  - Defaecation urgency [Fatal]
  - Hyperhidrosis [Unknown]
  - Arthralgia [Fatal]
  - Abdominal pain [Fatal]
  - Epistaxis [Fatal]
  - Emotional distress [Fatal]
  - Depressed mood [Fatal]
  - Altered state of consciousness [Fatal]
  - Bedridden [Fatal]
  - Hospitalisation [Fatal]
  - Stress [Fatal]
  - Asthenia [Unknown]
  - Hospitalisation [Unknown]
  - Vein rupture [Fatal]
  - Asthenia [Recovered/Resolved]

NARRATIVE: CASE EVENT DATE: 20240101
